FAERS Safety Report 7578344-4 (Version None)
Quarter: 2011Q2

REPORT INFORMATION
  Report Type: 
  Country: None (occurrence: None)
  Receive Date: 20110628
  Receipt Date: 20110621
  Transmission Date: 20111010
  Serious: Yes (Death, Other)
  Sender: FDA-Public Use
  Company Number: US-CELGENEUS-163-21880-11062876

PATIENT
  Sex: Male

DRUGS (6)
  1. REVLIMID [Suspect]
     Indication: MYELODYSPLASTIC SYNDROME
     Dosage: 5 MILLIGRAM
     Route: 048
     Dates: start: 20100401, end: 20100601
  2. EPOGEN [Concomitant]
     Route: 065
  3. CIPROFLOXACIN [Concomitant]
     Route: 065
  4. FUROSEMIDE [Concomitant]
     Route: 065
  5. PREDNISONE [Concomitant]
     Route: 065
  6. METOPROLOL TARTRATE [Concomitant]
     Route: 065

REACTIONS (3)
  - PLATELET COUNT DECREASED [None]
  - NO THERAPEUTIC RESPONSE [None]
  - DEATH [None]
